FAERS Safety Report 5587240-3 (Version None)
Quarter: 2008Q1

REPORT INFORMATION
  Report Type: 
  Country: None (occurrence: None)
  Receive Date: 20080110
  Receipt Date: 20080103
  Transmission Date: 20080703
  Serious: Yes (Other)
  Sender: FDA-Public Use
  Company Number: US-PFIZER INC-2006038198

PATIENT
  Sex: Female
  Weight: 79.4 kg

DRUGS (5)
  1. ZYRTEC [Suspect]
     Indication: ASTHMA
     Route: 065
  2. VITAMIN CAP [Concomitant]
     Route: 065
  3. CALCIUM WITH VITAMIN D [Concomitant]
     Route: 065
  4. TUMS [Concomitant]
  5. ALEVE [Concomitant]

REACTIONS (11)
  - BACK PAIN [None]
  - BODY HEIGHT DECREASED [None]
  - BONE DENSITY DECREASED [None]
  - DYSPEPSIA [None]
  - DYSPNOEA [None]
  - FLATULENCE [None]
  - RETINAL DETACHMENT [None]
  - SINUS HEADACHE [None]
  - SKIN LACERATION [None]
  - VISUAL ACUITY REDUCED [None]
  - VISUAL DISTURBANCE [None]
